FAERS Safety Report 20491880 (Version 3)
Quarter: 2022Q2

REPORT INFORMATION
  Report Type: Spontaneous
  Country: US (occurrence: US)
  Receive Date: 20220218
  Receipt Date: 20220519
  Transmission Date: 20220721
  Serious: Yes (Hospitalization, Other)
  Sender: FDA-Public Use
  Company Number: US-PFIZER INC-202101758192

PATIENT
  Age: 74 Year
  Sex: Female

DRUGS (1)
  1. IBRANCE [Suspect]
     Active Substance: PALBOCICLIB
     Dosage: 125 MG
     Dates: start: 20211014

REACTIONS (6)
  - Pleural effusion [Not Recovered/Not Resolved]
  - Dyspnoea [Not Recovered/Not Resolved]
  - Cough [Not Recovered/Not Resolved]
  - Pulmonary oedema [Unknown]
  - Neoplasm progression [Unknown]
  - White blood cell count decreased [Unknown]

NARRATIVE: CASE EVENT DATE: 20220101
